FAERS Safety Report 20608209 (Version 1)
Quarter: 2022Q1

REPORT INFORMATION
  Report Type: Spontaneous
  Country: US (occurrence: US)
  Receive Date: 20220317
  Receipt Date: 20220317
  Transmission Date: 20220423
  Serious: No
  Sender: FDA-Public Use
  Company Number: US-ENDO PHARMACEUTICALS INC-2021-011285

PATIENT
  Sex: Male
  Weight: 75.283 kg

DRUGS (1)
  1. XIAFLEX [Suspect]
     Active Substance: COLLAGENASE CLOSTRIDIUM HISTOLYTICUM
     Indication: Dupuytren^s contracture
     Dosage: UNK, UNKNOWN (INJECTION ONE)
     Route: 065
     Dates: start: 20210721

REACTIONS (10)
  - Inflammation [Recovered/Resolved]
  - Fatigue [Recovered/Resolved]
  - Weight decreased [Recovered/Resolved]
  - Night sweats [Recovered/Resolved]
  - Chills [Recovered/Resolved]
  - Urticaria [Recovered/Resolved]
  - Arthralgia [Recovered/Resolved]
  - Myalgia [Recovered/Resolved]
  - Pyrexia [Recovered/Resolved]
  - Dyspnoea [Recovered/Resolved]

NARRATIVE: CASE EVENT DATE: 20210101
